FAERS Safety Report 8344872-7 (Version None)
Quarter: 2012Q2

REPORT INFORMATION
  Report Type: 
  Country: None (occurrence: None)
  Receive Date: 20120508
  Receipt Date: 20120429
  Transmission Date: 20120825
  Serious: Yes (Other)
  Sender: FDA-Public Use
  Company Number: HU-GLAXOSMITHKLINE-B0799895A

PATIENT
  Age: 48 Year
  Sex: Female

DRUGS (2)
  1. XELODA [Concomitant]
  2. TYKERB [Suspect]
     Indication: BREAST CANCER
     Route: 065
     Dates: start: 20100101

REACTIONS (9)
  - PALMAR-PLANTAR ERYTHRODYSAESTHESIA SYNDROME [None]
  - SKIN REACTION [None]
  - DIARRHOEA [None]
  - DIZZINESS [None]
  - VISION BLURRED [None]
  - MALAISE [None]
  - ABDOMINAL PAIN LOWER [None]
  - PARONYCHIA [None]
  - NASAL INFLAMMATION [None]
